FAERS Safety Report 9096377 (Version 1)
Quarter: 2013Q1

REPORT INFORMATION
  Report Type: Spontaneous
  Country: US (occurrence: None)
  Receive Date: 20130219
  Receipt Date: 20130219
  Transmission Date: 20140127
  Serious: No
  Sender: FDA-Public Use
  Company Number: None

PATIENT
  Sex: 0

DRUGS (1)
  1. MIDAZOLAM [Suspect]
     Indication: SEDATION
     Dosage: TITRATE TO EFFECT
     Route: 042
     Dates: start: 20130203, end: 20130212

REACTIONS (1)
  - Drug effect decreased [None]
